FAERS Safety Report 19083252 (Version 1)
Quarter: 2021Q2

REPORT INFORMATION
  Report Type: Spontaneous
  Country: US (occurrence: US)
  Receive Date: 20210401
  Receipt Date: 20210401
  Transmission Date: 20210717
  Serious: No
  Sender: FDA-Public Use
  Company Number: None

PATIENT
  Age: 65 Year
  Sex: Female
  Weight: 54.98 kg

DRUGS (5)
  1. TRAMADOL. [Concomitant]
     Active Substance: TRAMADOL
  2. DRONABINOL. [Concomitant]
     Active Substance: DRONABINOL
  3. FASLODEX [Concomitant]
     Active Substance: FULVESTRANT
  4. XGEVA [Concomitant]
     Active Substance: DENOSUMAB
  5. IBRANCE [Suspect]
     Active Substance: PALBOCICLIB
     Indication: BREAST CANCER
     Dosage: ?          OTHER FREQUENCY:DAILY X 21 DAYS;?
     Route: 048
     Dates: start: 20210203, end: 20210224

REACTIONS (8)
  - Feeling abnormal [None]
  - Chest pain [None]
  - Nausea [None]
  - Alopecia [None]
  - Dyspnoea [None]
  - Decreased appetite [None]
  - Epistaxis [None]
  - Vomiting [None]

NARRATIVE: CASE EVENT DATE: 20210401
